FAERS Safety Report 8324122 (Version 2)
Quarter: 2012Q4

REPORT INFORMATION
  Report Type: 
  Country: US (occurrence: US)
  Receive Date: 20120105
  Receipt Date: 20121105
  Transmission Date: 20130627
  Serious: Yes (Death, Life-Threatening, Hospitalization, Other)
  Sender: FDA-Public Use
  Company Number: US-RB-036044-12

PATIENT
  Age: 15 Year
  Sex: Female

DRUGS (4)
  1. SUBOXONE UNSPECIFIED [Suspect]
     Indication: PRODUCT USED FOR UNKNOWN INDICATION
     Dosage: Dosing details unknown
     Route: 060
     Dates: start: 201112
  2. HEROIN [Suspect]
     Indication: PRODUCT USED FOR UNKNOWN INDICATION
     Dosage: 25-30 units
     Route: 042
     Dates: start: 20111222, end: 20111222
  3. METHAMPHETAMINE [Suspect]
     Indication: PRODUCT USED FOR UNKNOWN INDICATION
     Dosage: Dosing details unknown
     Route: 065
     Dates: start: 201112
  4. COCAINE [Suspect]
     Indication: PRODUCT USED FOR UNKNOWN INDICATION
     Dosage: Drug information unknown

REACTIONS (7)
  - Overdose [Fatal]
  - Convulsion [Fatal]
  - Brain injury [Fatal]
  - Heart injury [Fatal]
  - Vomiting [Fatal]
  - Unresponsive to stimuli [Fatal]
  - Toxicity to various agents [Fatal]
